FAERS Safety Report 6599823-2 (Version None)
Quarter: 2010Q1

REPORT INFORMATION
  Report Type: 
  Country: None (occurrence: None)
  Receive Date: 20100224
  Receipt Date: 20100216
  Transmission Date: 20100710
  Serious: Yes (Other)
  Sender: FDA-Public Use
  Company Number: US-ELI_LILLY_AND_COMPANY-US201002005338

PATIENT
  Sex: Male

DRUGS (4)
  1. BYETTA [Suspect]
     Dosage: 10 UG, UNK
     Dates: start: 20051001, end: 20091209
  2. GLUCOTROL XL [Concomitant]
  3. METFORMIN HCL [Concomitant]
  4. AVANDIA [Concomitant]

REACTIONS (2)
  - GASTROOESOPHAGEAL REFLUX DISEASE [None]
  - OESOPHAGEAL CARCINOMA [None]
